FAERS Safety Report 5582091-8 (Version None)
Quarter: 2008Q1

REPORT INFORMATION
  Report Type: 
  Country: None (occurrence: None)
  Receive Date: 20080104
  Receipt Date: 20071231
  Transmission Date: 20080703
  Serious: Yes (Hospitalization)
  Sender: FDA-Public Use
  Company Number: US-GENENTECH-253584

PATIENT
  Sex: Female

DRUGS (13)
  1. BEVACIZUMAB [Suspect]
     Indication: CERVIX CARCINOMA
     Dosage: 15 MG/KG, UNK
     Route: 042
     Dates: start: 20071204, end: 20071204
  2. CISPLATIN [Suspect]
     Indication: CERVIX CARCINOMA
     Dosage: 50 MG/M2, UNK
     Route: 042
     Dates: start: 20071204, end: 20071204
  3. TOPOTECAN [Suspect]
     Indication: CERVIX CARCINOMA
     Dosage: 0.75 MG/M2, UNK
     Route: 042
     Dates: start: 20071204, end: 20071206
  4. VERAPAMIL [Concomitant]
     Indication: DRUG USE FOR UNKNOWN INDICATION
     Dosage: 240 MG, BID
     Route: 048
  5. HYDROCHLOROTHIAZIDE [Concomitant]
     Indication: DRUG USE FOR UNKNOWN INDICATION
     Dosage: 25 MG, BID
     Route: 048
  6. METOPROLOL TARTRATE [Concomitant]
     Indication: DRUG USE FOR UNKNOWN INDICATION
     Dosage: 25 MG, BID
     Route: 048
  7. PERCOCET [Concomitant]
     Indication: PAIN
     Dosage: UNK, UNK
  8. MORPHINE [Concomitant]
     Indication: DRUG USE FOR UNKNOWN INDICATION
     Dosage: 2 MG, Q2H
  9. ZOFRAN [Concomitant]
     Indication: DRUG USE FOR UNKNOWN INDICATION
     Dosage: 4 MG, Q6M
     Route: 048
  10. CENTRUM SILVER [Concomitant]
     Indication: DRUG USE FOR UNKNOWN INDICATION
  11. REMERON [Concomitant]
     Indication: DECREASED APPETITE
     Dosage: 15 MG, QHS
     Route: 048
  12. FERROUS SULFATE TAB [Concomitant]
     Indication: DRUG USE FOR UNKNOWN INDICATION
     Dosage: 324 MG, QD
     Route: 048
  13. NYSTATIN [Concomitant]
     Indication: DRUG USE FOR UNKNOWN INDICATION
     Dosage: UNK, BID

REACTIONS (8)
  - ALANINE AMINOTRANSFERASE INCREASED [None]
  - ASPARTATE AMINOTRANSFERASE INCREASED [None]
  - ASTHENIA [None]
  - DECREASED APPETITE [None]
  - DYSPHONIA [None]
  - FATIGUE [None]
  - RENAL FAILURE [None]
  - URINE OUTPUT DECREASED [None]
